FAERS Safety Report 8593830-6 (Version None)
Quarter: 2012Q3

REPORT INFORMATION
  Report Type: 
  Country: None (occurrence: None)
  Receive Date: 20120814
  Receipt Date: 20120806
  Transmission Date: 20120928
  Serious: Yes (Other)
  Sender: FDA-Public Use
  Company Number: JP-ABBOTT-04P-087-0267052-00

PATIENT
  Sex: Male

DRUGS (29)
  1. TEGRETOL [Suspect]
     Dates: start: 20111207, end: 20120306
  2. TEGRETOL [Suspect]
     Dates: start: 20120307
  3. STAVUDINE [Suspect]
     Indication: HIV INFECTION
     Route: 048
     Dates: start: 20040824, end: 20061205
  4. AZITHROMYCIN [Concomitant]
     Indication: ANTIBIOTIC PROPHYLAXIS
     Route: 048
     Dates: start: 20030606, end: 20050613
  5. FLUCONAZOLE [Concomitant]
     Indication: CANDIDIASIS
     Route: 048
     Dates: start: 20030513
  6. TEGRETOL [Suspect]
     Dates: start: 20110706, end: 20110802
  7. SULFAMETHOXAZOLE AND TRIMETHOPRIM [Concomitant]
     Indication: ANTIFUNGAL PROPHYLAXIS
     Route: 048
     Dates: start: 20030510, end: 20030605
  8. DISTIGMINE BROMIDE [Concomitant]
     Indication: NEUROGENIC BLADDER
     Route: 048
     Dates: start: 20041007, end: 20050508
  9. ASPIRIN [Concomitant]
     Indication: UPPER RESPIRATORY TRACT INFLAMMATION
     Route: 048
     Dates: start: 20070110, end: 20070114
  10. KALETRA [Suspect]
     Indication: HIV INFECTION
     Dosage: 4 TABS, 800MG/200MG, DAILY
     Route: 048
     Dates: start: 20061004, end: 20110607
  11. SERRAPEPTASE [Concomitant]
     Indication: UPPER RESPIRATORY TRACT INFLAMMATION
     Route: 048
     Dates: start: 20070110, end: 20070114
  12. EMTRICITABINE/TENOFOVIR DISOPROXIL FUMARATE [Concomitant]
     Indication: PRODUCT USED FOR UNKNOWN INDICATION
     Dates: start: 20081210
  13. ZIDOVUDINE [Suspect]
     Indication: HIV INFECTION
     Route: 048
     Dates: start: 20030509, end: 20040823
  14. OMEPRAZOLE [Concomitant]
     Indication: GASTROOESOPHAGEAL REFLUX DISEASE
     Route: 048
     Dates: start: 20030501
  15. RALTEGRAVIR [Concomitant]
     Indication: PRODUCT USED FOR UNKNOWN INDICATION
     Dates: start: 20110608
  16. KALETRA [Suspect]
     Indication: HIV INFECTION
     Route: 048
     Dates: start: 20030509, end: 20061003
  17. KALETRA [Suspect]
  18. TEGRETOL [Suspect]
     Dates: start: 20110803, end: 20111107
  19. TEGRETOL [Suspect]
     Dates: start: 20111108, end: 20111206
  20. BEZAFIBRATE [Concomitant]
     Route: 048
     Dates: start: 20060406
  21. CEFCAPENE PIVOXIL HYDROCHLORIDE [Concomitant]
     Indication: UPPER RESPIRATORY TRACT INFLAMMATION
     Dates: start: 20080507, end: 20080511
  22. KALETRA [Suspect]
  23. EPZICOM [Suspect]
     Indication: HIV INFECTION
     Route: 048
     Dates: start: 20061206, end: 20081209
  24. LAMIVUDINE [Concomitant]
     Indication: HIV INFECTION
     Route: 048
     Dates: start: 20030509, end: 20061205
  25. ASPIRIN [Concomitant]
     Dates: start: 20080507, end: 20080516
  26. TEGRETOL [Suspect]
     Indication: EPILEPSY
     Route: 048
     Dates: start: 20070201, end: 20110705
  27. STAVUDINE [Concomitant]
     Route: 048
     Dates: start: 20040824
  28. BEZAFIBRATE [Concomitant]
     Indication: HYPERLIPIDAEMIA
     Route: 048
     Dates: start: 20040213, end: 20060405
  29. AZITHROMYCIN [Concomitant]
     Indication: UPPER RESPIRATORY TRACT INFLAMMATION
     Route: 048
     Dates: start: 20070110, end: 20070112

REACTIONS (8)
  - PANCYTOPENIA [None]
  - RED BLOOD CELL COUNT DECREASED [None]
  - RED BLOOD CELL COUNT ABNORMAL [None]
  - WHITE BLOOD CELL COUNT DECREASED [None]
  - HYPERLIPIDAEMIA [None]
  - DERMATITIS [None]
  - WHITE BLOOD CELL COUNT ABNORMAL [None]
  - LIVER DISORDER [None]
